FAERS Safety Report 19911385 (Version 1)
Quarter: 2021Q4

REPORT INFORMATION
  Report Type: Spontaneous
  Country: US (occurrence: US)
  Receive Date: 20211004
  Receipt Date: 20211004
  Transmission Date: 20220303
  Serious: Yes (Hospitalization)
  Sender: FDA-Public Use
  Company Number: US-ROCHE-2924635

PATIENT
  Sex: Female
  Weight: 38.14 kg

DRUGS (7)
  1. PEGASYS [Suspect]
     Active Substance: PEGINTERFERON ALFA-2A
     Indication: Myeloproliferative neoplasm
     Route: 058
     Dates: start: 20190121
  2. PEGASYS [Suspect]
     Active Substance: PEGINTERFERON ALFA-2A
     Route: 058
  3. DIAZEPAM [Suspect]
     Active Substance: DIAZEPAM
     Indication: Muscle twitching
     Route: 065
  4. OXYCODONE [Concomitant]
     Active Substance: OXYCODONE
  5. ZOFRAN [Concomitant]
     Active Substance: ONDANSETRON HYDROCHLORIDE
  6. ASPIRIN [Concomitant]
     Active Substance: ASPIRIN
  7. EXCEDRIN (UNITED STATES) [Concomitant]

REACTIONS (7)
  - Eye infection [Recovered/Resolved]
  - Influenza like illness [Not Recovered/Not Resolved]
  - Weight decreased [Not Recovered/Not Resolved]
  - Migraine [Unknown]
  - Oropharyngeal blistering [Not Recovered/Not Resolved]
  - Off label use [Unknown]
  - Vomiting [Unknown]
